FAERS Safety Report 20046924 (Version 1)
Quarter: 2021Q4

REPORT INFORMATION
  Report Type: Spontaneous
  Country: US (occurrence: None)
  Receive Date: 20211109
  Receipt Date: 20211109
  Transmission Date: 20220303
  Serious: No
  Sender: FDA-Public Use
  Company Number: None

PATIENT
  Sex: Male

DRUGS (1)
  1. ZOLEDRONIC ACID [Suspect]
     Active Substance: ZOLEDRONIC ACID
     Indication: Prostate cancer
     Dosage: OTHER QUANTITY : 4MG/ML;?FREQUENCY : MONTHLY;?
     Route: 042
     Dates: start: 20211011

REACTIONS (1)
  - Adverse drug reaction [None]
